FAERS Safety Report 5372741-3 (Version None)
Quarter: 2007Q2

REPORT INFORMATION
  Report Type: 
  Country: None (occurrence: None)
  Receive Date: 20070619
  Receipt Date: 20061009
  Transmission Date: 20071010
  Serious: Yes (Other)
  Sender: FDA-Public Use
  Company Number: WAES 0610USA06171

PATIENT
  Age: 57 Year
  Sex: Female

DRUGS (4)
  1. COZAAR [Suspect]
     Indication: BLOOD PRESSURE
     Dosage: 50 MG/DAILY/PO
     Route: 048
     Dates: start: 20050418
  2. ALLEGRA [Concomitant]
  3. PAXIL [Concomitant]
  4. ROZEREM [Concomitant]

REACTIONS (1)
  - SINUSITIS [None]
